FAERS Safety Report 5131886-3 (Version None)
Quarter: 2006Q4

REPORT INFORMATION
  Report Type: 
  Country: None (occurrence: None)
  Receive Date: 20061016
  Receipt Date: 20061002
  Transmission Date: 20070319
  Serious: Yes (Other)
  Sender: FDA-Public Use
  Company Number: 2006120074

PATIENT
  Age: 85 Year
  Sex: Female
  Weight: 58.9676 kg

DRUGS (8)
  1. DILANTIN [Suspect]
     Indication: CONVULSION
     Dates: start: 20060411
  2. LAMICTAL [Suspect]
     Indication: CONVULSION
     Dosage: 200 MG (100 MG, 2 IN 1 D)
     Dates: start: 20060501
  3. LOTREL [Concomitant]
  4. INDAPAMIDE [Concomitant]
  5. MECLIZINE [Concomitant]
  6. OTHER HYPNOTICS AND SEDATIVES (OTHER HYPNOTICS AND SEDATIVES) [Concomitant]
  7. VITAMIN E (VITAMINE E) [Concomitant]
  8. VITAMIN C (VITAMIN C) [Concomitant]

REACTIONS (5)
  - BREAST DISORDER [None]
  - CONVULSION [None]
  - HYPERTENSION [None]
  - MIDDLE INSOMNIA [None]
  - NIPPLE PAIN [None]
